FAERS Safety Report 4518360-X (Version None)
Quarter: 2004Q4

REPORT INFORMATION
  Report Type: 
  Country: None (occurrence: None)
  Receive Date: 20041202
  Receipt Date: 20041129
  Transmission Date: 20050328
  Serious: Yes (Hospitalization)
  Sender: FDA-Public Use
  Company Number: KII-2002-0002403

PATIENT
  Sex: Male

DRUGS (2)
  1. OXYCONTIN [Suspect]
     Indication: PAIN
     Dosage: 80 MG, Q12H
  2. OXYCONTIN [Suspect]
     Indication: PAIN
     Dosage: 40 MG, UNK

REACTIONS (2)
  - RESPIRATORY DEPRESSION [None]
  - ROAD TRAFFIC ACCIDENT [None]
